FAERS Safety Report 4560247-0 (Version None)
Quarter: 2005Q1

REPORT INFORMATION
  Report Type: 
  Country: None (occurrence: None)
  Receive Date: 20050120
  Receipt Date: 20050120
  Transmission Date: 20050727
  Serious: Yes (Other)
  Sender: FDA-Public Use
  Company Number: None

PATIENT
  Age: 63 Year
  Sex: Male

DRUGS (4)
  1. CORICIDIN D SRT [Suspect]
     Indication: NASOPHARYNGITIS
     Dosage: 4 TIMES A DAY   ORAL
     Route: 048
     Dates: start: 20041227, end: 20041231
  2. ALCOHOL [Suspect]
     Dosage: ORAL
     Route: 048
  3. DIVALPROEX SODIUM [Concomitant]
  4. WELLBUTRIN (BUPROPION) TABLETS [Concomitant]

REACTIONS (4)
  - FATIGUE [None]
  - HALLUCINATION [None]
  - MEMORY IMPAIRMENT [None]
  - SLEEP TALKING [None]
